FAERS Safety Report 10861187 (Version 1)
Quarter: 2015Q1

REPORT INFORMATION
  Report Type: Spontaneous
  Country: US (occurrence: None)
  Receive Date: 20150218
  Receipt Date: 20150218
  Transmission Date: 20150721
  Serious: Yes (Hospitalization)
  Sender: FDA-Public Use
  Company Number: None

PATIENT
  Age: 87 Year
  Sex: Female
  Weight: 47.7 kg

DRUGS (13)
  1. FLUTICASONE [Concomitant]
     Active Substance: FLUTICASONE\FLUTICASONE PROPIONATE
  2. FAMOTIDINE. [Concomitant]
     Active Substance: FAMOTIDINE
  3. ASA [Concomitant]
     Active Substance: ASPIRIN
  4. AMLODIPINE [Concomitant]
     Active Substance: AMLODIPINE BESYLATE
  5. XARELTO [Suspect]
     Active Substance: RIVAROXABAN
     Indication: DEEP VEIN THROMBOSIS
     Dosage: 1 TAB
     Route: 048
     Dates: start: 20140213, end: 20140504
  6. ATENOLOL. [Concomitant]
     Active Substance: ATENOLOL
  7. ALBUTEROL. [Concomitant]
     Active Substance: ALBUTEROL
  8. FUROSEMIDE. [Concomitant]
     Active Substance: FUROSEMIDE
  9. ALPRAZOLAM. [Concomitant]
     Active Substance: ALPRAZOLAM
  10. HYDROCODONE/APAP [Concomitant]
     Active Substance: ACETAMINOPHEN\HYDROCODONE
  11. IPRATROPIUM [Concomitant]
     Active Substance: IPRATROPIUM
  12. MELATONIN [Concomitant]
     Active Substance: MELATONIN
  13. DOCUSATE [Concomitant]
     Active Substance: DOCUSATE

REACTIONS (4)
  - Dysuria [None]
  - Haematuria [None]
  - Urinary tract infection [None]
  - Thrombosis [None]

NARRATIVE: CASE EVENT DATE: 20140504
